FAERS Safety Report 4931455-1 (Version None)
Quarter: 2006Q1

REPORT INFORMATION
  Report Type: 
  Country: None (occurrence: None)
  Receive Date: 20060303
  Receipt Date: 20051220
  Transmission Date: 20060701
  Serious: Yes (Other)
  Sender: FDA-Public Use
  Company Number: US-KINGPHARMUSA00001-K200501639

PATIENT
  Age: 68 Year
  Sex: Male

DRUGS (3)
  1. EPIPEN [Suspect]
  2. ATROPINE [Suspect]
  3. NITROLINGUAL [Suspect]

REACTIONS (1)
  - VENTRICULAR FIBRILLATION [None]
